FAERS Safety Report 7556370-9 (Version None)
Quarter: 2011Q2

REPORT INFORMATION
  Report Type: 
  Country: None (occurrence: None)
  Receive Date: 20110620
  Receipt Date: 20110607
  Transmission Date: 20111010
  Serious: Yes (Death, Hospitalization, Other)
  Sender: FDA-Public Use
  Company Number: HU-ELI_LILLY_AND_COMPANY-HU201106000090

PATIENT
  Age: 66 Year
  Sex: Female

DRUGS (1)
  1. FORTEO [Suspect]
     Dosage: 20 UG, QD
     Route: 058
     Dates: start: 20100601, end: 20110510

REACTIONS (5)
  - CARDIAC FAILURE [None]
  - PNEUMONIA [None]
  - HYPERTENSION [None]
  - CARDIAC DISORDER [None]
  - CARDIOGENIC SHOCK [None]
